FAERS Safety Report 21170724 (Version 3)
Quarter: 2022Q3

REPORT INFORMATION
  Report Type: Spontaneous
  Country: US (occurrence: US)
  Receive Date: 20220804
  Receipt Date: 20220926
  Transmission Date: 20221027
  Serious: Yes (Other)
  Sender: FDA-Public Use
  Company Number: US-BRISTOL-MYERS SQUIBB COMPANY-2022-082939

PATIENT
  Sex: Female
  Weight: 74.39 kg

DRUGS (2)
  1. ORENCIA [Suspect]
     Active Substance: ABATACEPT
     Indication: Rheumatoid arthritis
     Route: 058
     Dates: start: 2021
  2. ORENCIA [Suspect]
     Active Substance: ABATACEPT
     Indication: Polychondritis

REACTIONS (6)
  - Patella fracture [Unknown]
  - Fall [Unknown]
  - Device malfunction [Unknown]
  - Device leakage [Unknown]
  - Cough [Unknown]
  - Needle issue [Unknown]

NARRATIVE: CASE EVENT DATE: 20220527
